FAERS Safety Report 6781185-9 (Version None)
Quarter: 2010Q2

REPORT INFORMATION
  Report Type: 
  Country: None (occurrence: None)
  Receive Date: 20100621
  Receipt Date: 20100615
  Transmission Date: 20101027
  Serious: Yes (Other)
  Sender: FDA-Public Use
  Company Number: US-PFIZER INC-2010068197

PATIENT
  Sex: Female
  Weight: 55.782 kg

DRUGS (2)
  1. SOLU-MEDROL [Suspect]
     Indication: HYPERSENSITIVITY
     Dosage: 125 MG, UNK
     Route: 030
     Dates: start: 20100528
  2. ALBUTEROL [Concomitant]
     Dosage: UNK

REACTIONS (4)
  - ABASIA [None]
  - CRYING [None]
  - HYPOAESTHESIA [None]
  - PAIN IN EXTREMITY [None]
